FAERS Safety Report 10627261 (Version 3)
Quarter: 2015Q1

REPORT INFORMATION
  Report Type: Report from Study
  Country: US (occurrence: US)
  Receive Date: 20141204
  Receipt Date: 20150326
  Transmission Date: 20150720
  Serious: Yes (Hospitalization, Other)
  Sender: FDA-Public Use
  Company Number: US-009507513-1109USA01066

PATIENT
  Age: 42 Year
  Sex: Male
  Weight: 121.56 kg

DRUGS (4)
  1. DECADRON [Suspect]
     Active Substance: DEXAMETHASONE
     Indication: PLASMA CELL MYELOMA
     Dosage: 20 MG, ON DAY OF VELCADE
     Route: 042
     Dates: start: 20110118, end: 20110720
  2. HEXADROL [Suspect]
     Active Substance: DEXAMETHASONE
     Indication: PLASMA CELL MYELOMA
     Dosage: 20 MG, DAY AFTER VELCADE
     Route: 048
     Dates: start: 20110118, end: 20110720
  3. VELCADE [Suspect]
     Active Substance: BORTEZOMIB
     Indication: PLASMA CELL MYELOMA
     Dosage: 1.3 MG/M2, DAYS 1, 8, 15, 22 ON 35 DAY CYCLE
     Route: 042
     Dates: start: 20110118, end: 20110720
  4. DOXIL [Suspect]
     Active Substance: DOXORUBICIN HYDROCHLORIDE
     Indication: PLASMA CELL MYELOMA
     Dosage: 30 MG/M2, QM
     Route: 042
     Dates: start: 20110121, end: 20110629

REACTIONS (6)
  - Pyrexia [Recovered/Resolved]
  - Hyperphagia [Recovered/Resolved]
  - Abdominal pain [Unknown]
  - Abdominal pain upper [Recovered/Resolved]
  - Constipation [Recovered/Resolved]
  - Dyspnoea [Unknown]

NARRATIVE: CASE EVENT DATE: 20110307
